FAERS Safety Report 21413749 (Version 1)
Quarter: 2022Q4

REPORT INFORMATION
  Report Type: Spontaneous
  Country: CN (occurrence: CN)
  Receive Date: 20221006
  Receipt Date: 20221006
  Transmission Date: 20230112
  Serious: Yes (Other)
  Sender: FDA-Public Use
  Company Number: CN-009507513-2210CHN000059

PATIENT
  Age: 78 Year
  Sex: Male
  Weight: 62 kg

DRUGS (3)
  1. CILASTATIN SODIUM\IMIPENEM [Suspect]
     Active Substance: CILASTATIN SODIUM\IMIPENEM
     Indication: Infection
     Dosage: 1G, Q8H
     Route: 041
     Dates: start: 20200718, end: 20200720
  2. MOXIFLOXACIN HYDROCHLORIDE [Suspect]
     Active Substance: MOXIFLOXACIN HYDROCHLORIDE
     Indication: Anti-infective therapy
     Dosage: 0.4G, QD
     Route: 041
     Dates: start: 20200717, end: 20200725
  3. SODIUM CHLORIDE [Concomitant]
     Active Substance: SODIUM CHLORIDE
     Indication: Medication dilution
     Dosage: 100ML, Q8H
     Route: 041
     Dates: start: 20200718, end: 20200720

REACTIONS (6)
  - Dysphoria [Recovering/Resolving]
  - Disorganised speech [Recovering/Resolving]
  - Hallucination [Unknown]
  - Ill-defined disorder [Unknown]
  - Adverse event [Unknown]
  - Mental disorder [Unknown]

NARRATIVE: CASE EVENT DATE: 20200701
